FAERS Safety Report 7590497-0 (Version None)
Quarter: 2011Q2

REPORT INFORMATION
  Report Type: 
  Country: None (occurrence: None)
  Receive Date: 20110627
  Receipt Date: 20110615
  Transmission Date: 20111010
  Serious: Yes (Hospitalization)
  Sender: FDA-Public Use
  Company Number: JPI-P-015490

PATIENT
  Age: 57 Year
  Sex: Female
  Weight: 90.7194 kg

DRUGS (8)
  1. FLUTICASONE/SALMETEROL [Concomitant]
  2. MOMETASONE FUROATE [Concomitant]
  3. CYCLOBENAZPRINE [Concomitant]
  4. LEVOTHYROXINE [Concomitant]
  5. ALBUTEROL SULFATE AUTOHALER [Concomitant]
  6. XYREM [Suspect]
     Indication: CATAPLEXY
     Dosage: 9 GM (4.5 GM, 2 IN 1 D), ORAL (4 GM FIRST DOSE/ 2.5 GM SECOND DOSE), ORAL
     Route: 046
     Dates: start: 20110602, end: 20110601
  7. XYREM [Suspect]
     Indication: CATAPLEXY
     Dosage: 9 GM (4.5 GM, 2 IN 1 D), ORAL (4 GM FIRST DOSE/ 2.5 GM SECOND DOSE), ORAL
     Route: 046
     Dates: start: 20110601
  8. MILNACIPRAN HYDROCHLORIDE [Concomitant]

REACTIONS (3)
  - PSYCHOTIC DISORDER [None]
  - NAUSEA [None]
  - MENTAL DISORDER [None]
